FAERS Safety Report 10881652 (Version 1)
Quarter: 2015Q1

REPORT INFORMATION
  Report Type: Spontaneous
  Country: IT (occurrence: None)
  Receive Date: 20150226
  Receipt Date: 20150226
  Transmission Date: 20150721
  Serious: Yes (Other)
  Sender: FDA-Public Use
  Company Number: 2752934

PATIENT
  Age: 73 Year
  Sex: Male

DRUGS (2)
  1. OXALIPLATIN. [Suspect]
     Active Substance: OXALIPLATIN
     Indication: ADENOCARCINOMA OF COLON
     Dosage: 200 MG (CYCLICAL) INTRAVENOUS (NOT OTHERWISE SPECIFIED)
     Route: 042
     Dates: start: 20130814, end: 20140117
  2. CAPECITABINE. [Concomitant]
     Active Substance: CAPECITABINE

REACTIONS (5)
  - Tremor [None]
  - Dysphonia [None]
  - Muscle spasms [None]
  - Thrombocytopenia [None]
  - Dysarthria [None]

NARRATIVE: CASE EVENT DATE: 20131106
